FAERS Safety Report 11199746 (Version 1)
Quarter: 2015Q2

REPORT INFORMATION
  Report Type: Spontaneous
  Country: US (occurrence: US)
  Receive Date: 20150618
  Receipt Date: 20150618
  Transmission Date: 20150821
  Serious: No
  Sender: FDA-Public Use
  Company Number: US-BAYER-2015-354010

PATIENT
  Age: 58 Year
  Sex: Female
  Weight: 50 kg

DRUGS (2)
  1. GAMMA GLOBULIN [IMMUNOGLOBULIN] [Concomitant]
     Route: 030
  2. CLARITIN [Suspect]
     Active Substance: LORATADINE
     Indication: RASH
     Dosage: 1 DF, QD
     Route: 048
     Dates: start: 20150610, end: 20150612

REACTIONS (2)
  - Off label use [Unknown]
  - Condition aggravated [Not Recovered/Not Resolved]

NARRATIVE: CASE EVENT DATE: 20150610
